FAERS Safety Report 7582867-1 (Version None)
Quarter: 2011Q2

REPORT INFORMATION
  Report Type: 
  Country: None (occurrence: None)
  Receive Date: 20110627
  Receipt Date: 20110627
  Transmission Date: 20111010
  Serious: Yes (Other)
  Sender: FDA-Public Use
  Company Number: None

PATIENT
  Sex: Male
  Weight: 99.7913 kg

DRUGS (1)
  1. JANUMET [Suspect]
     Indication: TYPE 2 DIABETES MELLITUS
     Dosage: 1 BID PO
     Route: 048
     Dates: start: 20070905, end: 20110305

REACTIONS (4)
  - PULMONARY VASCULITIS [None]
  - RENAL VASCULITIS [None]
  - RENAL FAILURE ACUTE [None]
  - DIALYSIS [None]
